FAERS Safety Report 24977852 (Version 3)
Quarter: 2025Q4

REPORT INFORMATION
  Report Type: Spontaneous
  Country: US (occurrence: US)
  Receive Date: 20250217
  Receipt Date: 20251103
  Transmission Date: 20260117
  Serious: Yes (Other)
  Sender: PFIZER
  Company Number: US-PFIZER INC-202400311426

PATIENT
  Age: 88 Year
  Sex: Female

DRUGS (1)
  1. IBRANCE [Suspect]
     Active Substance: PALBOCICLIB
     Dosage: 100 MG, CYCLIC, ONCE DAILY FOR 21 DAYS ON AND 7 DAYS OFF

REACTIONS (5)
  - Blood magnesium decreased [Unknown]
  - Blood potassium decreased [Unknown]
  - Anaemia [Unknown]
  - Laboratory test abnormal [Unknown]
  - Nasopharyngitis [Unknown]
